FAERS Safety Report 12200518 (Version 1)
Quarter: 2016Q1

REPORT INFORMATION
  Report Type: Spontaneous
  Country: US (occurrence: US)
  Receive Date: 20160322
  Receipt Date: 20160322
  Transmission Date: 20160526
  Serious: No
  Sender: FDA-Public Use
  Company Number: US-SEPTODONT-201503040

PATIENT
  Age: 54 Year
  Sex: Female

DRUGS (2)
  1. SULTAN TOPEX [Concomitant]
     Indication: LOCAL ANAESTHESIA
     Route: 061
     Dates: start: 20150528, end: 20150528
  2. LIDOCAINE HYDROCHLORIDE 2% WITH EPINEPHRINE 1:100,000 INJECTION [Suspect]
     Active Substance: EPINEPHRINE\LIDOCAINE HYDROCHLORIDE
     Indication: LOCAL ANAESTHESIA
     Route: 004
     Dates: start: 20150528, end: 20150528

REACTIONS (4)
  - Palpitations [Recovered/Resolved]
  - Hyperhidrosis [Unknown]
  - Migraine [Unknown]
  - Dizziness [Recovered/Resolved]

NARRATIVE: CASE EVENT DATE: 20150528
